FAERS Safety Report 13695020 (Version 1)
Quarter: 2017Q2

REPORT INFORMATION
  Report Type: Spontaneous
  Country: US (occurrence: US)
  Receive Date: 20170627
  Receipt Date: 20170627
  Transmission Date: 20170830
  Serious: No
  Sender: FDA-Public Use
  Company Number: US-ASTRAZENECA-2017SE64988

PATIENT
  Age: 22630 Day
  Sex: Female
  Weight: 59.4 kg

DRUGS (3)
  1. BEVESPI AEROSPHERE [Suspect]
     Active Substance: FORMOTEROL FUMARATE\GLYCOPYRROLATE
     Indication: BRONCHITIS
     Dosage: 9MCG/4.8MCG TWO INHALATIONS TWICE A DAY
     Route: 055
     Dates: end: 20170615
  2. BEVESPI AEROSPHERE [Suspect]
     Active Substance: FORMOTEROL FUMARATE\GLYCOPYRROLATE
     Indication: CHRONIC OBSTRUCTIVE PULMONARY DISEASE
     Dosage: 9MCG/4.8MCG TWO INHALATIONS TWICE A DAY
     Route: 055
     Dates: end: 20170615
  3. ALBUTEROL INHLER [Concomitant]
     Indication: ILL-DEFINED DISORDER
     Dosage: AS REQUIRED

REACTIONS (3)
  - Dyspnoea [Unknown]
  - Product use in unapproved indication [Unknown]
  - Off label use [Not Recovered/Not Resolved]

NARRATIVE: CASE EVENT DATE: 20170613
